FAERS Safety Report 9165801 (Version 1)
Quarter: 2013Q1

REPORT INFORMATION
  Report Type: Spontaneous
  Country: US (occurrence: US)
  Receive Date: 20130315
  Receipt Date: 20130315
  Transmission Date: 20140127
  Serious: Yes (Disabling, Other)
  Sender: FDA-Public Use
  Company Number: US-009507513-1303USA007222

PATIENT
  Age: 36 Year
  Sex: Female
  Weight: 146.94 kg

DRUGS (2)
  1. SAPHRIS [Suspect]
     Indication: BIPOLAR II DISORDER
     Dosage: INITIALLY GIVEN AS 5 MG,HS LATER INCREASED TO10 MG,HS
     Route: 060
     Dates: start: 2012
  2. SAPHRIS [Suspect]
     Dosage: 10 MG,HS
     Route: 060
     Dates: start: 201204, end: 20120801

REACTIONS (4)
  - Movement disorder [Unknown]
  - Nervous system disorder [Unknown]
  - Pain [Unknown]
  - Dry mouth [Unknown]
